FAERS Safety Report 15806683 (Version 7)
Quarter: 2020Q1

REPORT INFORMATION
  Report Type: Report from Study
  Country: BR (occurrence: BR)
  Receive Date: 20190110
  Receipt Date: 20200108
  Transmission Date: 20200409
  Serious: Yes (Other)
  Sender: FDA-Public Use
  Company Number: PHHY2019BR001508

PATIENT
  Age: 66 Year
  Sex: Female
  Weight: 52 kg

DRUGS (5)
  1. COSENTYX [Suspect]
     Active Substance: SECUKINUMAB
     Dosage: 300 MG, Q4W
     Route: 058
  2. COSENTYX [Suspect]
     Active Substance: SECUKINUMAB
     Dosage: UNK
     Route: 065
     Dates: start: 20191004
  3. GLIFAGE [Concomitant]
     Active Substance: METFORMIN HYDROCHLORIDE
     Indication: PRODUCT USED FOR UNKNOWN INDICATION
     Dosage: 500 MG
     Route: 065
  4. COSENTYX [Suspect]
     Active Substance: SECUKINUMAB
     Indication: PSORIATIC ARTHROPATHY
     Dosage: UNK
     Route: 065
     Dates: start: 201812
  5. COSENTYX [Suspect]
     Active Substance: SECUKINUMAB
     Indication: PSORIASIS
     Dosage: 300 MG, QW
     Route: 058

REACTIONS (31)
  - Osteoarthritis [Unknown]
  - Pyrexia [Recovered/Resolved]
  - Feeling abnormal [Recovered/Resolved]
  - Gait disturbance [Unknown]
  - Spinal disorder [Unknown]
  - Osteopenia [Unknown]
  - Arthralgia [Unknown]
  - Alopecia [Unknown]
  - Erythema [Unknown]
  - Vision blurred [Recovered/Resolved]
  - Nervousness [Unknown]
  - Malaise [Unknown]
  - Loss of consciousness [Unknown]
  - Rheumatic disorder [Unknown]
  - Therapeutic product effect incomplete [Unknown]
  - Arthritis [Unknown]
  - Viral infection [Unknown]
  - Bone disorder [Unknown]
  - Chronic sinusitis [Unknown]
  - Skin mass [Unknown]
  - Vomiting [Unknown]
  - Limb discomfort [Unknown]
  - Gout [Unknown]
  - Abdominal pain [Unknown]
  - Cough [Unknown]
  - Osteoporosis [Unknown]
  - Psoriasis [Unknown]
  - Skin haemorrhage [Recovered/Resolved]
  - Pruritus [Recovering/Resolving]
  - Macule [Unknown]
  - Joint stiffness [Recovered/Resolved]

NARRATIVE: CASE EVENT DATE: 20190420
